APPROVED DRUG PRODUCT: XYLOCAINE W/ EPINEPHRINE
Active Ingredient: EPINEPHRINE; LIDOCAINE HYDROCHLORIDE
Strength: 0.005MG/ML;2%
Dosage Form/Route: INJECTABLE;INJECTION
Application: N006488 | Product #019 | TE Code: AP
Applicant: FRESENIUS KABI USA LLC
Approved: Nov 13, 1986 | RLD: Yes | RS: Yes | Type: RX